FAERS Safety Report 17445104 (Version 6)
Quarter: 2021Q4

REPORT INFORMATION
  Report Type: Spontaneous
  Country: US (occurrence: US)
  Receive Date: 20200221
  Receipt Date: 20211004
  Transmission Date: 20220303
  Serious: Yes (Other)
  Sender: FDA-Public Use
  Company Number: US-PFIZER INC-2020076879

PATIENT
  Age: 84 Year
  Sex: Female

DRUGS (6)
  1. LYRICA [Suspect]
     Active Substance: PREGABALIN
     Indication: Spinal osteoarthritis
     Dosage: 100 MG, 3X/DAY
     Route: 048
  2. LYRICA [Suspect]
     Active Substance: PREGABALIN
     Indication: Post laminectomy syndrome
  3. LYRICA [Suspect]
     Active Substance: PREGABALIN
     Indication: Lymphoedema
  4. LYRICA [Suspect]
     Active Substance: PREGABALIN
     Indication: Pain
  5. LYRICA [Suspect]
     Active Substance: PREGABALIN
     Indication: Fibromyalgia
  6. BUTRANS [Concomitant]
     Active Substance: BUPRENORPHINE
     Dosage: 20 UG, WEEKLY

REACTIONS (3)
  - Cerebrovascular accident [Unknown]
  - Drug ineffective [Unknown]
  - Confusional state [Unknown]
